FAERS Safety Report 7936150-2 (Version None)
Quarter: 2011Q4

REPORT INFORMATION
  Report Type: 
  Country: None (occurrence: None)
  Receive Date: 20111123
  Receipt Date: 20111115
  Transmission Date: 20120403
  Serious: Yes (Other)
  Sender: FDA-Public Use
  Company Number: AU-BRISTOL-MYERS SQUIBB COMPANY-16232753

PATIENT
  Age: 45 Year
  Sex: Male

DRUGS (8)
  1. REYATAZ [Suspect]
     Indication: ANTIRETROVIRAL THERAPY
     Dosage: 1DF:300MG/100MG
     Dates: start: 20060101
  2. TRUVADA [Suspect]
     Indication: ANTIRETROVIRAL THERAPY
     Dates: start: 20060101
  3. METOPROLOL TARTRATE [Suspect]
  4. ACETYLSALICYLIC ACID SRT [Suspect]
  5. RITONAVIR [Suspect]
     Indication: ANTIRETROVIRAL THERAPY
     Dates: start: 20060101
  6. ROSUVASTATIN [Suspect]
  7. CLOPIDOGREL BISULFATE [Suspect]
  8. RAMIPRIL [Suspect]

REACTIONS (2)
  - NAUSEA [None]
  - MYOCARDIAL INFARCTION [None]
